FAERS Safety Report 9431647 (Version 1)
Quarter: 2013Q3

REPORT INFORMATION
  Report Type: Spontaneous
  Country: US (occurrence: US)
  Receive Date: 20130731
  Receipt Date: 20130731
  Transmission Date: 20140515
  Serious: Yes (Hospitalization)
  Sender: FDA-Public Use
  Company Number: US-BIOGENIDEC-2013BI068999

PATIENT
  Sex: Female

DRUGS (1)
  1. AVONEX [Suspect]
     Indication: MULTIPLE SCLEROSIS
     Route: 030
     Dates: start: 20080908

REACTIONS (14)
  - Hypoaesthesia [Unknown]
  - Asthenia [Unknown]
  - Fatigue [Unknown]
  - Speech disorder [Unknown]
  - Mobility decreased [Unknown]
  - Dysstasia [Unknown]
  - Hypertension [Unknown]
  - Fear [Unknown]
  - Multiple sclerosis [Unknown]
  - Musculoskeletal disorder [Unknown]
  - Stress [Unknown]
  - Temperature intolerance [Unknown]
  - Emotional disorder [Unknown]
  - Multiple sclerosis relapse [Unknown]
